FAERS Safety Report 4942862-5 (Version None)
Quarter: 2006Q1

REPORT INFORMATION
  Report Type: 
  Country: None (occurrence: None)
  Receive Date: 20060309
  Receipt Date: 20060224
  Transmission Date: 20060701
  Serious: Yes (Other)
  Sender: FDA-Public Use
  Company Number: 222529

PATIENT
  Age: 45 Year
  Sex: Female
  Weight: 61 kg

DRUGS (9)
  1. RITUXAN [Suspect]
     Indication: NON-HODGKIN'S LYMPHOMA
     Dosage: 600 MG, UNK; INTRAVENOUS
     Route: 042
     Dates: start: 20041006
  2. DOXORUBICIN HYDROCHLORIDE [Suspect]
     Indication: NON-HODGKIN'S LYMPHOMA
     Dosage: 80 MG, UNK; INTRAVENOUS
     Route: 042
     Dates: start: 20041006
  3. ENDOXAN (CYCLOPHOSPHAMIDE) [Suspect]
     Indication: NON-HODGKIN'S LYMPHOMA
     Dosage: 1200 MG, UNK; INTRAVENOUS
     Route: 042
     Dates: start: 20041006
  4. ONCOVIN [Suspect]
     Indication: NON-HODGKIN'S LYMPHOMA
     Dosage: 2 MG, UNK; INTRAVENOUS
     Route: 042
     Dates: start: 20041006
  5. PREDONNE (PREDNISOLONE, PREDNISOLONE ACETATE, PREDNISOLONE SODIUM SUCC [Suspect]
     Indication: NON-HODGKIN'S LYMPHOMA
     Dosage: 100 MG, UNK; INTRAVENOUS
     Route: 042
     Dates: start: 20041006
  6. IBUPROFEN [Concomitant]
  7. POLARAMINE [Concomitant]
  8. MUCOSTA (REBAMIPIDE) [Concomitant]
  9. HYDROCORTISONE SODIUM SUCCINATE [Concomitant]

REACTIONS (4)
  - HYPOAESTHESIA [None]
  - NEUROPATHY PERIPHERAL [None]
  - NEUTROPHIL COUNT DECREASED [None]
  - WHITE BLOOD CELL COUNT DECREASED [None]
